FAERS Safety Report 4979453-6 (Version None)
Quarter: 2006Q2

REPORT INFORMATION
  Report Type: 
  Country: None (occurrence: None)
  Receive Date: 20060421
  Receipt Date: 20051006
  Transmission Date: 20061013
  Serious: Yes (Hospitalization)
  Sender: FDA-Public Use
  Company Number: US-MERCK-0510USA05861

PATIENT
  Age: 60 Year
  Sex: Male
  Weight: 58 kg

DRUGS (1)
  1. VIOXX [Suspect]
     Indication: PAIN MANAGEMENT
     Route: 048
     Dates: start: 20021024, end: 20021109

REACTIONS (6)
  - ANXIETY [None]
  - ARTERIAL INSUFFICIENCY [None]
  - CHEST PAIN [None]
  - HERNIA [None]
  - ISCHAEMIC STROKE [None]
  - SWELLING [None]
